FAERS Safety Report 13782006 (Version 10)
Quarter: 2018Q2

REPORT INFORMATION
  Report Type: Spontaneous
  Country: US (occurrence: US)
  Receive Date: 20170724
  Receipt Date: 20180413
  Transmission Date: 20180711
  Serious: Yes (Hospitalization)
  Sender: FDA-Public Use
  Company Number: US-ACTELION-A-NJ2017-157065

PATIENT
  Age: 58 Year
  Sex: Male
  Weight: 83.9 kg

DRUGS (6)
  1. TRACLEER [Concomitant]
     Active Substance: BOSENTAN
     Indication: PULMONARY ARTERIAL HYPERTENSION
  2. ADCIRCA [Concomitant]
     Active Substance: TADALAFIL
  3. VELETRI [Suspect]
     Active Substance: EPOPROSTENOL
     Indication: PULMONARY HYPERTENSION
     Dosage: 30 NG/KG, PER MIN
     Route: 042
  4. VELETRI [Suspect]
     Active Substance: EPOPROSTENOL
     Dosage: 36.3 NG/KG, PER MIN
     Route: 042
  5. ORENITRAM [Concomitant]
     Active Substance: TREPROSTINIL
  6. OPSUMIT [Suspect]
     Active Substance: MACITENTAN
     Indication: PULMONARY HYPERTENSION
     Dosage: 10 MG, QD
     Route: 048

REACTIONS (16)
  - Fluid retention [Unknown]
  - Fluid overload [Unknown]
  - Pain [Unknown]
  - Small intestinal obstruction [Unknown]
  - Chest discomfort [Unknown]
  - Diarrhoea [Unknown]
  - Asthenia [Unknown]
  - Ventricular tachycardia [Unknown]
  - Complication associated with device [Unknown]
  - Dyspnoea [Unknown]
  - Swelling [Unknown]
  - Device issue [Unknown]
  - Abdominal discomfort [Unknown]
  - Thrombosis [Unknown]
  - Oxygen consumption increased [Unknown]
  - Cellulitis [Unknown]
